FAERS Safety Report 24316216 (Version 1)
Quarter: 2024Q3

REPORT INFORMATION
  Report Type: Spontaneous
  Country: CA (occurrence: CA)
  Receive Date: 20240913
  Receipt Date: 20240913
  Transmission Date: 20241017
  Serious: Yes (Other)
  Sender: CHEPLAPHARM
  Company Number: CA-CHEPLA-2024011676

PATIENT
  Age: 46 Year
  Sex: Female

DRUGS (11)
  1. TRETINOIN [Suspect]
     Active Substance: TRETINOIN
     Indication: Acute promyelocytic leukaemia
     Dosage: 45 MG/M2 DAILY WAS INITIATED ON DAY 1
  2. HYDROXYUREA [Suspect]
     Active Substance: HYDROXYUREA
     Indication: Acute promyelocytic leukaemia
     Dosage: 4 GS DAILY BETWEEN DAYS 6?18
  3. ATORVASTATIN CALCIUM [Suspect]
     Active Substance: ATORVASTATIN CALCIUM
     Indication: Acute promyelocytic leukaemia
     Dosage: INITIATED ON DAY 3?DAILY DOSE: 0.15 MILLIGRAM/KG
     Route: 042
  4. IRON SUCROSE [Concomitant]
     Active Substance: IRON SUCROSE
     Dosage: FOR 3 DAYS?DAILY DOSE: 300 MILLIGRAM
     Route: 042
  5. IRON SUCROSE [Concomitant]
     Active Substance: IRON SUCROSE
     Dosage: THEN WEEKLY FOR 4 DOSES, ?DAILY DOSE: 300 MILLIGRAM
     Route: 042
  6. FOLIC ACID [Concomitant]
     Active Substance: FOLIC ACID
  7. VITAMIN B12 [Concomitant]
     Active Substance: CYANOCOBALAMIN
  8. DARBEPOETIN ALFA [Concomitant]
     Active Substance: DARBEPOETIN ALFA
     Dosage: 3 TIMES WEEKLY FOR 6 WEEKS
     Route: 058
  9. TRANEXAMIC ACID [Concomitant]
     Active Substance: TRANEXAMIC ACID
  10. PROGESTERONE [Concomitant]
     Active Substance: PROGESTERONE
     Route: 048
  11. CYTARABINE [Concomitant]
     Active Substance: CYTARABINE
     Indication: Leukocytosis
     Dosage: 200 MG IV ON DAY 7
     Route: 042

REACTIONS (4)
  - Syncope [Unknown]
  - Hypotension [Unknown]
  - Escherichia infection [Unknown]
  - Off label use [Unknown]
